FAERS Safety Report 8293072-8 (Version None)
Quarter: 2012Q2

REPORT INFORMATION
  Report Type: 
  Country: None (occurrence: None)
  Receive Date: 20120417
  Receipt Date: 20111106
  Transmission Date: 20120825
  Serious: No
  Sender: FDA-Public Use
  Company Number: US-ASTRAZENECA-2011SE67145

PATIENT
  Age: 79 Year
  Sex: Male
  Weight: 78 kg

DRUGS (2)
  1. NEXIUM [Suspect]
     Route: 048
     Dates: start: 20111103, end: 20111104
  2. MANY MEDICATIONS [Concomitant]

REACTIONS (7)
  - EATING DISORDER [None]
  - HYPERSOMNIA [None]
  - SOMNOLENCE [None]
  - DRUG PRESCRIBING ERROR [None]
  - PRODUCTIVE COUGH [None]
  - OEDEMA [None]
  - NASOPHARYNGITIS [None]
